FAERS Safety Report 17558097 (Version 1)
Quarter: 2020Q1

REPORT INFORMATION
  Report Type: Spontaneous
  Country: US (occurrence: US)
  Receive Date: 20200318
  Receipt Date: 20200318
  Transmission Date: 20200409
  Serious: No
  Sender: FDA-Public Use
  Company Number: US-ELI_LILLY_AND_COMPANY-US202002008773

PATIENT
  Age: 62 Year
  Sex: Female

DRUGS (4)
  1. BASAGLAR [Suspect]
     Active Substance: INSULIN GLARGINE
     Indication: TYPE 2 DIABETES MELLITUS
     Dosage: 70 U, BID
     Route: 058
     Dates: start: 201907
  2. NOVOLOG [Concomitant]
     Active Substance: INSULIN ASPART
     Indication: TYPE 2 DIABETES MELLITUS
     Dosage: 40 U, BEFORE MEALS
     Route: 065
  3. BASAGLAR [Suspect]
     Active Substance: INSULIN GLARGINE
     Dosage: 70 U, BID
     Route: 058
     Dates: start: 201907
  4. VICTOZA [Concomitant]
     Active Substance: LIRAGLUTIDE
     Indication: TYPE 2 DIABETES MELLITUS
     Dosage: 1.2 MG, UNKNOWN
     Route: 065
     Dates: start: 20200208

REACTIONS (4)
  - Decreased appetite [Not Recovered/Not Resolved]
  - Injection site haemorrhage [Unknown]
  - Inappropriate schedule of product administration [Unknown]
  - Pollakiuria [Unknown]

NARRATIVE: CASE EVENT DATE: 201908
